FAERS Safety Report 22078067 (Version 2)
Quarter: 2023Q1

REPORT INFORMATION
  Report Type: Spontaneous
  Country: JP (occurrence: None)
  Receive Date: 20230309
  Receipt Date: 20230316
  Transmission Date: 20230418
  Serious: Yes (Hospitalization)
  Sender: FDA-Public Use
  Company Number: 2023A048977

PATIENT
  Age: 73 Year
  Sex: Female

DRUGS (1)
  1. TAGRISSO [Suspect]
     Active Substance: OSIMERTINIB
     Indication: Non-small cell lung cancer
     Route: 048

REACTIONS (4)
  - Vomiting [Recovered/Resolved]
  - Fluid intake reduced [Recovered/Resolved]
  - Decreased appetite [Recovered/Resolved]
  - Cancer pain [Recovered/Resolved]

NARRATIVE: CASE EVENT DATE: 20230224
